FAERS Safety Report 7830212-6 (Version None)
Quarter: 2011Q4

REPORT INFORMATION
  Report Type: 
  Country: None (occurrence: None)
  Receive Date: 20111021
  Receipt Date: 20111014
  Transmission Date: 20120403
  Serious: Yes (Other)
  Sender: FDA-Public Use
  Company Number: PHHY2011CR91041

PATIENT
  Sex: Female

DRUGS (2)
  1. TAMBOCOR [Concomitant]
  2. DIOVAN HCT [Suspect]
     Indication: HYPERTENSION
     Dosage: 1 DF (160/12.5 MG), DAILY
     Route: 048
     Dates: start: 20060101

REACTIONS (2)
  - DIVERTICULITIS [None]
  - HYPOTENSION [None]
